FAERS Safety Report 13340279 (Version 12)
Quarter: 2017Q4

REPORT INFORMATION
  Report Type: Spontaneous
  Country: US (occurrence: US)
  Receive Date: 20170316
  Receipt Date: 20171116
  Transmission Date: 20180320
  Serious: Yes (Other)
  Sender: FDA-Public Use
  Company Number: US-ALEXION PHARMACEUTICALS INC.-A201702512

PATIENT
  Sex: Female

DRUGS (6)
  1. STRENSIQ [Suspect]
     Active Substance: ASFOTASE ALFA
     Indication: HYPOPHOSPHATASIA
     Dosage: 80 MG/ML
     Route: 058
  2. STRENSIQ [Suspect]
     Active Substance: ASFOTASE ALFA
     Dosage: 40 MG/ML
     Route: 058
  3. STRENSIQ [Suspect]
     Active Substance: ASFOTASE ALFA
     Dosage: 80 MG, UNK
     Route: 058
  4. STRENSIQ [Suspect]
     Active Substance: ASFOTASE ALFA
     Dosage: 1 MG/KG, SIX TIMES/WEEK
     Route: 058
  5. STRENSIQ [Suspect]
     Active Substance: ASFOTASE ALFA
     Dosage: 1 MG/KG, SIX TIMES/WEEK
     Route: 058
  6. STRENSIQ [Suspect]
     Active Substance: ASFOTASE ALFA
     Dosage: UNK
     Route: 058

REACTIONS (24)
  - Swelling [Unknown]
  - Hypersomnia [Unknown]
  - Injection site bruising [Unknown]
  - Injection site urticaria [Unknown]
  - Dark circles under eyes [Unknown]
  - Blood iron decreased [Unknown]
  - Injection site joint pain [Not Recovered/Not Resolved]
  - Fatigue [Unknown]
  - Depression [Unknown]
  - Decreased appetite [Unknown]
  - Asthenia [Unknown]
  - Injection site pain [Not Recovered/Not Resolved]
  - Injection site mass [Unknown]
  - General physical health deterioration [Unknown]
  - Drug ineffective [Unknown]
  - Injection site pruritus [Unknown]
  - Blood calcium decreased [Unknown]
  - Muscle twitching [Unknown]
  - Peripheral coldness [Unknown]
  - Blood electrolytes decreased [Unknown]
  - Blood sodium decreased [Unknown]
  - Eye swelling [Unknown]
  - Skin discolouration [Unknown]
  - Injection site reaction [Not Recovered/Not Resolved]

NARRATIVE: CASE EVENT DATE: 20170301
